FAERS Safety Report 14883431 (Version 1)
Quarter: 2018Q2

REPORT INFORMATION
  Report Type: Spontaneous
  Country: GB (occurrence: GB)
  Receive Date: 20180511
  Receipt Date: 20180511
  Transmission Date: 20180711
  Serious: Yes (Life-Threatening, Hospitalization)
  Sender: FDA-Public Use
  Company Number: GB-AMGEN-GBRSP2018064469

PATIENT
  Age: 67 Year
  Sex: Male
  Weight: 88 kg

DRUGS (19)
  1. KYPROLIS [Suspect]
     Active Substance: CARFILZOMIB
     Dosage: 112 MG, UNK
     Route: 042
     Dates: start: 20180307, end: 20180307
  2. KYPROLIS [Suspect]
     Active Substance: CARFILZOMIB
     Dosage: 90 MG, UNK
     Route: 042
     Dates: start: 20180418
  3. DEXAMETHASONE ACETATE [Concomitant]
     Active Substance: DEXAMETHASONE ACETATE
     Dosage: UNK
  4. KYPROLIS [Suspect]
     Active Substance: CARFILZOMIB
     Dosage: 112 MG, UNK
     Route: 042
     Dates: start: 20180301, end: 20180301
  5. KYPROLIS [Suspect]
     Active Substance: CARFILZOMIB
     Dosage: 112 MG, UNK
     Route: 042
     Dates: start: 20180322, end: 20180322
  6. ACICLOVIR [Concomitant]
     Active Substance: ACYCLOVIR
     Dosage: UNK
  7. KYPROLIS [Suspect]
     Active Substance: CARFILZOMIB
     Indication: PLASMA CELL MYELOMA
     Dosage: 40 MG, UNK
     Route: 042
     Dates: start: 20180219, end: 20180219
  8. KYPROLIS [Suspect]
     Active Substance: CARFILZOMIB
     Dosage: 112 MG, UNK
     Route: 042
     Dates: start: 20180308, end: 20180308
  9. KYPROLIS [Suspect]
     Active Substance: CARFILZOMIB
     Dosage: UNK
     Route: 042
     Dates: start: 20180328, end: 20180328
  10. KYPROLIS [Suspect]
     Active Substance: CARFILZOMIB
     Dosage: UNK
     Route: 042
     Dates: start: 20180329, end: 20180329
  11. ACETYLSALICYLIC ACID [Concomitant]
     Active Substance: ASPIRIN
     Dosage: UNK
  12. IRBESARTAN. [Concomitant]
     Active Substance: IRBESARTAN
     Dosage: UNK
  13. KYPROLIS [Suspect]
     Active Substance: CARFILZOMIB
     Dosage: UNK
     Route: 042
     Dates: start: 20180405, end: 20180405
  14. BENDROFLUMETHIAZIDE [Concomitant]
     Active Substance: BENDROFLUMETHIAZIDE
     Dosage: UNK
  15. OMEPRAZOLE SODIUM [Concomitant]
     Active Substance: OMEPRAZOLE SODIUM
     Dosage: UNK
  16. KYPROLIS [Suspect]
     Active Substance: CARFILZOMIB
     Dosage: 40 MG, UNK
     Route: 042
     Dates: start: 20180220, end: 20180220
  17. KYPROLIS [Suspect]
     Active Substance: CARFILZOMIB
     Dosage: 112 MG, UNK
     Route: 042
     Dates: start: 20180228, end: 20180228
  18. AMLODIPINE MALEATE [Concomitant]
     Active Substance: AMLODIPINE MALEATE
     Dosage: UNK
  19. KYPROLIS [Suspect]
     Active Substance: CARFILZOMIB
     Dosage: 112 MG, UNK
     Route: 042
     Dates: start: 20180321, end: 20180321

REACTIONS (2)
  - Respiratory failure [Recovering/Resolving]
  - Pneumothorax [Recovering/Resolving]

NARRATIVE: CASE EVENT DATE: 20180418
